FAERS Safety Report 16107985 (Version 1)
Quarter: 2019Q1

REPORT INFORMATION
  Report Type: Spontaneous
  Country: CA (occurrence: CA)
  Receive Date: 20190322
  Receipt Date: 20190322
  Transmission Date: 20190418
  Serious: Yes (Hospitalization)
  Sender: FDA-Public Use
  Company Number: PHHY2019CA059523

PATIENT
  Age: 34 Year
  Sex: Male
  Weight: 105 kg

DRUGS (1)
  1. ZOFRAN ODT [Suspect]
     Active Substance: ONDANSETRON HYDROCHLORIDE
     Indication: NAUSEA
     Dosage: 8.0 MG, UNK
     Route: 060

REACTIONS (4)
  - Tetany [Recovered/Resolved]
  - Dystonia [Recovered/Resolved]
  - Chorea [Recovered/Resolved]
  - Paraesthesia [Recovered/Resolved]
